FAERS Safety Report 8934894 (Version 1)
Quarter: 2012Q4

REPORT INFORMATION
  Report Type: 
  Country: US (occurrence: US)
  Receive Date: 20121129
  Receipt Date: 20121129
  Transmission Date: 20130627
  Serious: Yes (Other)
  Sender: FDA-Public Use
  Company Number: US-TARO-2012P1000253

PATIENT
  Age: 61 Year
  Sex: Female
  Weight: 72.58 kg

DRUGS (11)
  1. CARBAMAZEPINE [Suspect]
     Indication: NEURALGIA
     Dates: start: 201110, end: 201110
  2. CARBAMAZEPINE [Suspect]
     Indication: NEURALGIA
     Dates: start: 201110, end: 201110
  3. CARBAMAZEPINE [Suspect]
     Indication: NEURALGIA
     Dates: start: 201110, end: 201110
  4. HCTZ [Concomitant]
  5. KCL [Concomitant]
  6. METOPROLOL SUCCINATE [Concomitant]
  7. LEVOXYL [Concomitant]
  8. SUPER B COMPLEX [Concomitant]
  9. VITAMIN B12 [Concomitant]
  10. FISH OIL [Concomitant]
  11. COQ10 [Concomitant]

REACTIONS (8)
  - Drug ineffective [None]
  - Toxicity to various agents [Unknown]
  - Ataxia [None]
  - Fatigue [None]
  - Speech disorder [None]
  - Lethargy [None]
  - Depressed level of consciousness [None]
  - Blood pressure increased [None]
